FAERS Safety Report 14898734 (Version 9)
Quarter: 2020Q2

REPORT INFORMATION
  Report Type: Spontaneous
  Country: US (occurrence: US)
  Receive Date: 20180515
  Receipt Date: 20200624
  Transmission Date: 20200713
  Serious: Yes (Hospitalization)
  Sender: FDA-Public Use
  Company Number: US-ACTELION-A-US2018-171202

PATIENT
  Age: 74 Year
  Sex: Female
  Weight: 73.02 kg

DRUGS (7)
  1. TREPROSTINIL SODIUM [Concomitant]
     Active Substance: TREPROSTINIL SODIUM
     Indication: PULMONARY ARTERIAL HYPERTENSION
     Dosage: 0.6 MG
     Dates: start: 20180815
  2. OPSUMIT [Suspect]
     Active Substance: MACITENTAN
     Indication: PULMONARY ARTERIAL HYPERTENSION
     Dosage: 10 MG, QD
     Route: 048
     Dates: start: 20180330
  3. XARELTO [Suspect]
     Active Substance: RIVAROXABAN
     Indication: PRODUCT USED FOR UNKNOWN INDICATION
     Route: 048
  4. ADEMPAS [Concomitant]
     Active Substance: RIOCIGUAT
     Indication: PRODUCT USED FOR UNKNOWN INDICATION
     Dosage: 1 MG, UNK
     Route: 065
  5. IRON [Suspect]
     Active Substance: IRON
     Indication: PRODUCT USED FOR UNKNOWN INDICATION
     Route: 048
  6. OXYGEN. [Suspect]
     Active Substance: OXYGEN
     Indication: PRODUCT USED FOR UNKNOWN INDICATION
     Route: 065
  7. OFEV [Concomitant]
     Active Substance: NINTEDANIB
     Indication: IDIOPATHIC PULMONARY FIBROSIS
     Dosage: 300 MG, BID
     Route: 048
     Dates: start: 20181018

REACTIONS (21)
  - Full blood count decreased [Recovered/Resolved]
  - Pneumonia [Recovered/Resolved]
  - Head discomfort [Unknown]
  - Dry skin [Unknown]
  - Skin exfoliation [Unknown]
  - Alopecia [Unknown]
  - Dyspnoea exertional [Unknown]
  - Epistaxis [Unknown]
  - Cough [Unknown]
  - Sinus congestion [Unknown]
  - Productive cough [Unknown]
  - Abdominal pain upper [Unknown]
  - Vomiting [Unknown]
  - Nasal discomfort [Unknown]
  - Diarrhoea [Unknown]
  - Oxygen consumption increased [Unknown]
  - Dizziness [Unknown]
  - Pruritus [Unknown]
  - Muscle spasms [Unknown]
  - Dyspnoea [Unknown]
  - Abdominal discomfort [Unknown]

NARRATIVE: CASE EVENT DATE: 20180410
